FAERS Safety Report 8255990-6 (Version None)
Quarter: 2012Q2

REPORT INFORMATION
  Report Type: 
  Country: None (occurrence: None)
  Receive Date: 20120403
  Receipt Date: 20120322
  Transmission Date: 20120825
  Serious: Yes (Hospitalization)
  Sender: FDA-Public Use
  Company Number: DE-ROCHE-1051891

PATIENT
  Sex: Male
  Weight: 59 kg

DRUGS (3)
  1. AVASTIN [Suspect]
     Indication: RECTAL CANCER
     Route: 042
     Dates: start: 20120213
  2. IRINOTECAN HCL [Suspect]
     Indication: RECTAL CANCER
     Route: 042
     Dates: start: 20120213
  3. CETUXIMAB [Suspect]
     Indication: RECTAL CANCER
     Route: 048
     Dates: start: 20120213

REACTIONS (3)
  - VOMITING [None]
  - NAUSEA [None]
  - GENERAL PHYSICAL HEALTH DETERIORATION [None]
